FAERS Safety Report 5480266-X (Version None)
Quarter: 2007Q4

REPORT INFORMATION
  Report Type: 
  Country: None (occurrence: None)
  Receive Date: 20071009
  Receipt Date: 20071004
  Transmission Date: 20080405
  Serious: Yes (Life-Threatening)
  Sender: FDA-Public Use
  Company Number: JP-BRISTOL-MYERS SQUIBB COMPANY-13930854

PATIENT
  Age: 71 Year
  Sex: Female

DRUGS (2)
  1. TAXOL [Suspect]
     Indication: BREAST CANCER
     Route: 041
     Dates: start: 20070301, end: 20070901
  2. GOSHAJINKIGAN [Suspect]
     Route: 048
     Dates: start: 20070701

REACTIONS (1)
  - INTERSTITIAL LUNG DISEASE [None]
